FAERS Safety Report 6805924-3 (Version None)
Quarter: 2010Q2

REPORT INFORMATION
  Report Type: 
  Country: None (occurrence: None)
  Receive Date: 20100629
  Receipt Date: 20071108
  Transmission Date: 20101027
  Serious: No
  Sender: FDA-Public Use
  Company Number: US-PFIZER INC-2007080400

PATIENT
  Sex: Male

DRUGS (7)
  1. VIAGRA [Suspect]
     Indication: ERECTILE DYSFUNCTION
  2. METFORMIN HCL [Concomitant]
  3. ALTACE [Concomitant]
  4. GLIMEPIRIDE [Concomitant]
  5. ALL OTHER THERAPEUTIC PRODUCTS [Concomitant]
  6. ASPIRIN [Concomitant]
  7. CRESTOR [Concomitant]

REACTIONS (1)
  - DRUG INEFFECTIVE [None]
